FAERS Safety Report 7638224-2 (Version None)
Quarter: 2011Q3

REPORT INFORMATION
  Report Type: 
  Country: None (occurrence: None)
  Receive Date: 20110727
  Receipt Date: 20110722
  Transmission Date: 20111222
  Serious: Yes (Hospitalization)
  Sender: FDA-Public Use
  Company Number: JP-SANOFI-AVENTIS-2011SA039856

PATIENT
  Age: 83 Year
  Sex: Female
  Weight: 46.4 kg

DRUGS (11)
  1. PIPERACILLIN SODIUM [Concomitant]
     Route: 042
     Dates: start: 20110616, end: 20110618
  2. DIGOXIN [Concomitant]
     Route: 048
     Dates: start: 20110617, end: 20110620
  3. LASIX [Concomitant]
     Route: 042
     Dates: start: 20110614, end: 20110615
  4. DIOVAN [Concomitant]
     Route: 048
     Dates: start: 20110613, end: 20110629
  5. ENOXAPARIN SODIUM [Suspect]
     Route: 058
     Dates: start: 20110618, end: 20110619
  6. AMARYL [Concomitant]
     Route: 048
     Dates: start: 20110613, end: 20110620
  7. HEPARIN SODIUM [Concomitant]
     Route: 042
     Dates: start: 20110614, end: 20110616
  8. ALLOPURINOL [Concomitant]
     Route: 048
     Dates: start: 20110613, end: 20110620
  9. WARFARIN SODIUM [Concomitant]
     Route: 048
     Dates: start: 20110613
  10. NORVASC [Concomitant]
     Route: 048
     Dates: start: 20110613
  11. LANSOPRAZOLE [Concomitant]
     Route: 048
     Dates: start: 20110613

REACTIONS (4)
  - HEPATITIS ACUTE [None]
  - VOMITING [None]
  - PYREXIA [None]
  - JAUNDICE [None]
